FAERS Safety Report 14478870 (Version 2)
Quarter: 2018Q1

REPORT INFORMATION
  Report Type: Spontaneous
  Country: US (occurrence: US)
  Receive Date: 20180202
  Receipt Date: 20180321
  Transmission Date: 20180509
  Serious: No
  Sender: FDA-Public Use
  Company Number: US-PFIZER INC-2018043865

PATIENT

DRUGS (3)
  1. OXAPROZIN. [Suspect]
     Active Substance: OXAPROZIN
     Indication: FIBROMYALGIA
     Dosage: UNK
  2. OXAPROZIN. [Suspect]
     Active Substance: OXAPROZIN
     Indication: HEADACHE
  3. OXAPROZIN. [Suspect]
     Active Substance: OXAPROZIN
     Indication: ARTHRITIS

REACTIONS (1)
  - Drug ineffective [Unknown]
